FAERS Safety Report 8891417 (Version 1)
Quarter: 2012Q4

REPORT INFORMATION
  Report Type: Spontaneous
  Country: US (occurrence: None)
  Receive Date: 20121105
  Receipt Date: 20121105
  Transmission Date: 20130627
  Serious: No
  Sender: FDA-Public Use
  Company Number: None

PATIENT
  Age: 70 Year
  Sex: Male
  Weight: 123.6 kg

DRUGS (1)
  1. FERUMOXYTOL [Suspect]
     Indication: IRON SUPPLEMENTATION
     Dosage: 510 mg, once, iv
     Route: 042
     Dates: start: 20121017, end: 20121017

REACTIONS (3)
  - Urticaria [None]
  - Pruritus [None]
  - Rash [None]
